FAERS Safety Report 5718269-X (Version None)
Quarter: 2008Q2

REPORT INFORMATION
  Report Type: 
  Country: None (occurrence: None)
  Receive Date: 20080425
  Receipt Date: 20070604
  Transmission Date: 20081010
  Serious: No
  Sender: FDA-Public Use
  Company Number: US-ASTRAZENECA-2007UW13442

PATIENT
  Age: 49 Year
  Sex: Female
  Weight: 72.6 kg

DRUGS (2)
  1. ZOMIG [Suspect]
     Indication: MIGRAINE
     Route: 048
  2. LEXAPRO [Concomitant]

REACTIONS (3)
  - CHEST PAIN [None]
  - EAR PAIN [None]
  - PAIN IN JAW [None]
